FAERS Safety Report 22191309 (Version 3)
Quarter: 2023Q2

REPORT INFORMATION
  Report Type: Report from Study
  Country: RO (occurrence: RO)
  Receive Date: 20230410
  Receipt Date: 20230424
  Transmission Date: 20230722
  Serious: Yes (Hospitalization)
  Sender: FDA-Public Use
  Company Number: RO-ABBVIE-4720658

PATIENT
  Age: 72 Year
  Sex: Male

DRUGS (5)
  1. CARBIDOPA\LEVODOPA [Suspect]
     Active Substance: CARBIDOPA\LEVODOPA
     Indication: Parkinson^s disease
     Dosage: DM=4.00 DC=3.00 ED=1.50 NRED=2; DMN=0.00 DCN=2.50 EDN=2.50 NREDN=2
     Route: 050
     Dates: start: 20120613
  2. CARBIDOPA\LEVODOPA [Suspect]
     Active Substance: CARBIDOPA\LEVODOPA
  3. TAMSULOSIN HYDROCHLORIDE [Concomitant]
     Active Substance: TAMSULOSIN HYDROCHLORIDE
     Indication: Product used for unknown indication
     Dosage: 1 TABLET?FORM STRENGTH: 0.4 MILLIGRAM
     Route: 048
     Dates: start: 20230413
  4. ZEVESIN [Concomitant]
     Indication: Parkinson^s disease
     Dosage: 1 TABLET?FORM STRENGTH: 5 MILLIGRAM
     Route: 048
     Dates: start: 20230413
  5. NEUPRO [Concomitant]
     Active Substance: ROTIGOTINE
     Indication: Parkinson^s disease
     Dosage: 1 PATCH IN THE EVENING?FORM STRENGTH: 8 MILLIGRAM
     Route: 023
     Dates: start: 20230413

REACTIONS (19)
  - Psychomotor hyperactivity [Recovering/Resolving]
  - Hallucination [Recovering/Resolving]
  - On and off phenomenon [Recovering/Resolving]
  - Dyskinesia [Recovering/Resolving]
  - Insomnia [Recovering/Resolving]
  - Confusional state [Recovering/Resolving]
  - Posterior cortical atrophy [Recovering/Resolving]
  - Device issue [Unknown]
  - Parkinson^s disease [Recovering/Resolving]
  - Device breakage [Unknown]
  - Essential hypertension [Recovering/Resolving]
  - Device dislocation [Unknown]
  - Disorientation [Recovered/Resolved]
  - Cognitive disorder [Recovering/Resolving]
  - Cardiac failure congestive [Recovering/Resolving]
  - Psychomotor hyperactivity [Recovered/Resolved]
  - Mixed dementia [Recovering/Resolving]
  - Cerebral infarction [Recovering/Resolving]
  - Myocardial ischaemia [Recovering/Resolving]

NARRATIVE: CASE EVENT DATE: 20230403
